FAERS Safety Report 7146832-0 (Version None)
Quarter: 2010Q4

REPORT INFORMATION
  Report Type: 
  Country: None (occurrence: None)
  Receive Date: 20101209
  Receipt Date: 20100827
  Transmission Date: 20110411
  Serious: Yes (Death, Hospitalization)
  Sender: FDA-Public Use
  Company Number: AU-ACTELION-A-CH2010-39363

PATIENT
  Sex: Female

DRUGS (1)
  1. TRACLEER [Suspect]
     Dosage: UNK , UNK
     Route: 048

REACTIONS (1)
  - DEATH [None]
